FAERS Safety Report 23056545 (Version 1)
Quarter: 2023Q4

REPORT INFORMATION
  Report Type: Spontaneous
  Country: DK (occurrence: DK)
  Receive Date: 20231011
  Receipt Date: 20231011
  Transmission Date: 20240110
  Serious: Yes (Life-Threatening, Hospitalization)
  Sender: FDA-Public Use
  Company Number: None

PATIENT
  Age: 61 Year
  Sex: Female

DRUGS (6)
  1. TECFIDERA [Suspect]
     Active Substance: DIMETHYL FUMARATE
     Indication: Multiple sclerosis
     Dosage: STRENGTH: 240 MG.
     Route: 050
     Dates: start: 202207, end: 202309
  2. LUMIGAN [Concomitant]
     Active Substance: BIMATOPROST
     Indication: Glaucoma
     Route: 050
     Dates: start: 20230119
  3. WARFARIN SODIUM [Concomitant]
     Active Substance: WARFARIN SODIUM
     Indication: Anticoagulant therapy
     Route: 050
     Dates: start: 20230420
  4. TAFLUPROST [Concomitant]
     Active Substance: TAFLUPROST
     Indication: Ocular hypertension
     Route: 050
     Dates: start: 20220829
  5. LOSARTAN [Concomitant]
     Active Substance: LOSARTAN
     Indication: Hypertension
     Route: 050
     Dates: start: 20211213
  6. ATORVASTATIN ^XIROMED^ [Concomitant]
     Indication: Hypercholesterolaemia
     Route: 050
     Dates: start: 20210809

REACTIONS (1)
  - Breast cancer [Unknown]

NARRATIVE: CASE EVENT DATE: 20230907
